FAERS Safety Report 24232586 (Version 3)
Quarter: 2024Q3

REPORT INFORMATION
  Report Type: Spontaneous
  Country: CA (occurrence: CA)
  Receive Date: 20240821
  Receipt Date: 20240831
  Transmission Date: 20241017
  Serious: Yes (Other)
  Sender: ACCORD
  Company Number: CA-MLMSERVICE-20240805-PI152157-00255-1

PATIENT
  Age: 86 Year
  Sex: Female

DRUGS (1)
  1. PACLITAXEL [Suspect]
     Active Substance: PACLITAXEL
     Indication: Endometrial cancer

REACTIONS (2)
  - Pemphigoid [Recovering/Resolving]
  - Off label use [Unknown]
